FAERS Safety Report 6901315-5 (Version None)
Quarter: 2010Q3

REPORT INFORMATION
  Report Type: 
  Country: None (occurrence: None)
  Receive Date: 20100803
  Receipt Date: 20080117
  Transmission Date: 20110219
  Serious: No
  Sender: FDA-Public Use
  Company Number: US-PFIZER INC-2008006302

PATIENT
  Sex: Female
  Weight: 68 kg

DRUGS (21)
  1. LYRICA [Suspect]
     Indication: BACK PAIN
     Dates: start: 20070101
  2. LYRICA [Suspect]
     Indication: ARTHRALGIA
  3. LYRICA [Suspect]
     Indication: ARTHRITIS
  4. PLAVIX [Concomitant]
  5. MACROGOL [Concomitant]
  6. ROXICET [Concomitant]
  7. TRICOR [Concomitant]
  8. TOPROL-XL [Concomitant]
  9. CLONIDINE [Concomitant]
  10. NIFEDIPINE [Concomitant]
  11. LIPITOR [Concomitant]
  12. PROTONIX [Concomitant]
  13. ACETYLSALICYLIC ACID SRT [Concomitant]
  14. VALSARTAN [Concomitant]
  15. TIMOLOL MALEATE [Concomitant]
  16. AZOPT [Concomitant]
  17. FUROSEMIDE [Concomitant]
  18. TRAVATAN [Concomitant]
  19. VITAMIN TAB [Concomitant]
  20. NITROGLYCERIN [Concomitant]
  21. GAS-X [Concomitant]

REACTIONS (2)
  - SOMNOLENCE [None]
  - VISION BLURRED [None]
